FAERS Safety Report 21962682 (Version 1)
Quarter: 2023Q1

REPORT INFORMATION
  Report Type: Other
  Country: None (occurrence: US)
  Receive Date: 20230207
  Receipt Date: 20230207
  Transmission Date: 20230418
  Serious: Yes (Hospitalization, Other)
  Sender: FDA-Public Use
  Company Number: US-Spectra Medical Devices, LLC-2137618

PATIENT

DRUGS (4)
  1. LIDOCAINE HYDROCHLORIDE ANHYDROUS [Suspect]
     Active Substance: LIDOCAINE HYDROCHLORIDE ANHYDROUS
     Indication: Foetal exposure during pregnancy
     Route: 064
  2. FENTANYL [Suspect]
     Active Substance: FENTANYL
     Route: 064
  3. PROPOFOL [Suspect]
     Active Substance: PROPOFOL
     Route: 064
  4. REMIFENTANIL HYDROCHLORIDE [Suspect]
     Active Substance: REMIFENTANIL HYDROCHLORIDE
     Route: 064

REACTIONS (3)
  - Cardio-respiratory arrest neonatal [Unknown]
  - Premature baby [Unknown]
  - Foetal exposure during pregnancy [Unknown]
